FAERS Safety Report 23769885 (Version 1)
Quarter: 2024Q2

REPORT INFORMATION
  Report Type: Spontaneous
  Country: US (occurrence: None)
  Receive Date: 20240421
  Receipt Date: 20240421
  Transmission Date: 20240716
  Serious: Yes (Hospitalization)
  Sender: FDA-Public Use
  Company Number: None

PATIENT
  Age: 61 Year
  Sex: Male
  Weight: 73.8 kg

DRUGS (10)
  1. CARVYKTI [Suspect]
     Active Substance: CILTACABTAGENE AUTOLEUCEL
     Indication: Plasma cell myeloma
     Dosage: 1 DF DOSAGE FORM ONCE INTRAVENOUS BOLUS
     Route: 040
     Dates: start: 20231120, end: 20231120
  2. LEVOFLOXACIN [Concomitant]
     Active Substance: LEVOFLOXACIN
     Dates: start: 20231115
  3. FLUCONAZOLE [Concomitant]
     Active Substance: FLUCONAZOLE
  4. ACYCLOVIR [Concomitant]
     Active Substance: ACYCLOVIR
     Dates: start: 20231115
  5. OMEPRAZOLE [Concomitant]
     Active Substance: OMEPRAZOLE
  6. XTAMPZA [Concomitant]
     Active Substance: OXYCODONE
  7. DULOXETINE [Concomitant]
     Active Substance: DULOXETINE
  8. ASPIRIN [Concomitant]
     Active Substance: ASPIRIN
  9. FLONASE [Concomitant]
     Active Substance: FLUTICASONE PROPIONATE
  10. TESTOSTERONE CYPIONATE [Concomitant]
     Active Substance: TESTOSTERONE CYPIONATE

REACTIONS (3)
  - Hypotension [None]
  - Cytokine release syndrome [None]
  - Pancytopenia [None]

NARRATIVE: CASE EVENT DATE: 20231127
